FAERS Safety Report 6313870-7 (Version None)
Quarter: 2009Q3

REPORT INFORMATION
  Report Type: 
  Country: None (occurrence: None)
  Receive Date: 20090817
  Receipt Date: 20090817
  Transmission Date: 20100115
  Serious: Yes (Hospitalization)
  Sender: FDA-Public Use
  Company Number: None

PATIENT
  Age: 17 Year
  Sex: Female
  Weight: 56.6996 kg

DRUGS (5)
  1. REMICADE [Suspect]
     Indication: COLITIS ULCERATIVE
     Dosage: ONCE IV DRIP
     Route: 041
     Dates: start: 20090104, end: 20090104
  2. ADVAIR HFA [Concomitant]
  3. SINGULAIR [Concomitant]
  4. HYDROCORTISONE OINTMENT [Concomitant]
  5. MESALAMINE [Concomitant]

REACTIONS (10)
  - BACK PAIN [None]
  - BLOOD PRESSURE DECREASED [None]
  - CHEST PAIN [None]
  - HEPATIC ENZYME INCREASED [None]
  - MENINGITIS [None]
  - NAUSEA [None]
  - OEDEMA [None]
  - PANCREATIC DISORDER [None]
  - RENAL DISORDER [None]
  - WEIGHT DECREASED [None]
